FAERS Safety Report 7430340-3 (Version None)
Quarter: 2011Q2

REPORT INFORMATION
  Report Type: 
  Country: None (occurrence: None)
  Receive Date: 20110421
  Receipt Date: 20100512
  Transmission Date: 20111010
  Serious: Yes (Hospitalization)
  Sender: FDA-Public Use
  Company Number: US-ASTRAZENECA-2010SE21908

PATIENT
  Sex: Male

DRUGS (1)
  1. TOPROL-XL [Suspect]
     Indication: BLOOD PRESSURE
     Route: 048

REACTIONS (2)
  - MYOCARDIAL INFARCTION [None]
  - SLEEP APNOEA SYNDROME [None]
